FAERS Safety Report 4387484-2 (Version None)
Quarter: 2004Q2

REPORT INFORMATION
  Report Type: 
  Country: None (occurrence: None)
  Receive Date: 20040630
  Receipt Date: 20040521
  Transmission Date: 20050107
  Serious: No
  Sender: FDA-Public Use
  Company Number: US-BRISTOL-MYERS SQUIBB COMPANY-12594800

PATIENT
  Age: 38 Year
  Sex: Male
  Weight: 68 kg

DRUGS (6)
  1. REYATAZ [Suspect]
     Indication: HIV INFECTION
     Dosage: INCREASED TO 200 MG TWICE DAILY IN MAY-2004 FOR 30 DAYS.
     Route: 048
     Dates: start: 20040301
  2. SUSTIVA [Suspect]
     Indication: HIV INFECTION
  3. EPIVIR [Suspect]
     Indication: HIV INFECTION
  4. NORVIR [Suspect]
     Indication: HIV INFECTION
     Dates: end: 20040501
  5. BACTRIM [Concomitant]
  6. ACYCLOVIR [Concomitant]

REACTIONS (6)
  - CHILLS [None]
  - FEELING HOT [None]
  - NECK MASS [None]
  - OEDEMA PERIPHERAL [None]
  - PARAESTHESIA [None]
  - PRURITUS [None]
